APPROVED DRUG PRODUCT: AMOXICILLIN
Active Ingredient: AMOXICILLIN
Strength: 125MG
Dosage Form/Route: TABLET, CHEWABLE;ORAL
Application: A065021 | Product #001
Applicant: SUN PHARMACEUTICAL INDUSTRIES LTD
Approved: Dec 23, 1999 | RLD: No | RS: No | Type: DISCN